FAERS Safety Report 16809120 (Version 1)
Quarter: 2019Q4

REPORT INFORMATION
  Report Type: Spontaneous
  Country: US (occurrence: US)
  Receive Date: 20190914
  Receipt Date: 20190914
  Transmission Date: 20200122
  Serious: No
  Sender: FDA-Public Use
  Company Number: None

PATIENT
  Age: 71 Year
  Sex: Male
  Weight: 90 kg

DRUGS (1)
  1. GADOLINIUM [Suspect]
     Active Substance: GADOLINIUM
     Indication: MAGNETIC RESONANCE IMAGING
     Dates: start: 20190722, end: 20190722

REACTIONS (9)
  - Asthenia [None]
  - Pollakiuria [None]
  - Dysuria [None]
  - Hyperaesthesia [None]
  - Hypotension [None]
  - Cognitive disorder [None]
  - Balance disorder [None]
  - Vision blurred [None]
  - Heart rate increased [None]

NARRATIVE: CASE EVENT DATE: 20190723
